FAERS Safety Report 17431004 (Version 1)
Quarter: 2020Q1

REPORT INFORMATION
  Report Type: Spontaneous
  Country: US (occurrence: US)
  Receive Date: 20200217
  Receipt Date: 20200217
  Transmission Date: 20200409
  Serious: Yes (Death)
  Sender: FDA-Public Use
  Company Number: None

PATIENT
  Age: 73 Year
  Sex: Female

DRUGS (17)
  1. BROVANA 15MCG NEBS [Concomitant]
  2. OMEPRAZOLE 40MG [Concomitant]
     Active Substance: OMEPRAZOLE
  3. VENLAFAXINE ER 150MG [Concomitant]
     Active Substance: VENLAFAXINE HYDROCHLORIDE
  4. ATORVASTATIN 20MG [Concomitant]
     Active Substance: ATORVASTATIN
  5. CLONAZEPAM 0.5MG [Concomitant]
     Active Substance: CLONAZEPAM
  6. FUROSEMIDE 20MG [Concomitant]
     Active Substance: FUROSEMIDE
  7. SODIUM CHLORIDE 7% NEB [Concomitant]
  8. IPRATROPIUM NEBS [Concomitant]
  9. LEVALBUTEROL 1.25MG NEBS [Concomitant]
  10. GABAPENTIN 300 MG [Concomitant]
     Active Substance: GABAPENTIN
  11. LEVOTHYROXINE 0.088MG [Concomitant]
  12. LOSARTAN 100MG [Concomitant]
     Active Substance: LOSARTAN
  13. PULMOZYME 1MG NEBS [Concomitant]
  14. MORPHINE 10MG/5ML [Concomitant]
  15. TRIKAFTA [Suspect]
     Active Substance: ELEXACAFTOR\IVACAFTOR\TEZACAFTOR
     Indication: CYSTIC FIBROSIS
     Route: 048
  16. BUDESONIDE 0.5MG NEB [Concomitant]
  17. TOBRAMYCIN 300MG NEB [Concomitant]
     Active Substance: TOBRAMYCIN

REACTIONS (1)
  - Death [None]

NARRATIVE: CASE EVENT DATE: 20200214
